FAERS Safety Report 12511328 (Version 1)
Quarter: 2016Q2

REPORT INFORMATION
  Report Type: Spontaneous
  Country: US (occurrence: US)
  Receive Date: 20160629
  Receipt Date: 20160629
  Transmission Date: 20160815
  Serious: Yes (Life-Threatening)
  Sender: FDA-Public Use
  Company Number: US-FRESENIUS KABI-FK201603960

PATIENT
  Age: 79 Year
  Sex: Female

DRUGS (1)
  1. AMIODARONE HCL (MANUFACTURER UNKNOWN) [Suspect]
     Active Substance: AMIODARONE HYDROCHLORIDE
     Indication: CARDIOVERSION
     Route: 042

REACTIONS (2)
  - Kounis syndrome [Unknown]
  - Product use issue [Unknown]
